FAERS Safety Report 5900331-X (Version None)
Quarter: 2008Q3

REPORT INFORMATION
  Report Type: 
  Country: None (occurrence: None)
  Receive Date: 20080926
  Receipt Date: 20080915
  Transmission Date: 20090109
  Serious: Yes (Other)
  Sender: FDA-Public Use
  Company Number: IN-ROCHE-587378

PATIENT
  Age: 33 Year
  Sex: Male

DRUGS (4)
  1. CELLCEPT [Suspect]
     Route: 065
  2. CELLCEPT [Suspect]
     Route: 065
  3. PREDNISOLONE [Suspect]
     Route: 065
  4. PREDNISOLONE [Suspect]
     Route: 065

REACTIONS (2)
  - FUNGAL SKIN INFECTION [None]
  - RENAL FAILURE CHRONIC [None]
